FAERS Safety Report 15821510 (Version 3)
Quarter: 2019Q1

REPORT INFORMATION
  Report Type: Spontaneous
  Country: BR (occurrence: BR)
  Receive Date: 20190114
  Receipt Date: 20190321
  Transmission Date: 20190417
  Serious: Yes (Hospitalization)
  Sender: FDA-Public Use
  Company Number: BR-PFIZER INC-2019013743

PATIENT
  Age: 56 Year
  Sex: Female

DRUGS (5)
  1. LORAX//LORAZEPAM [Suspect]
     Active Substance: LORAZEPAM
     Indication: AUTISM SPECTRUM DISORDER
     Dosage: 4 MG, DAILY (4 TABLETS DAILY OF 1 MG)
     Dates: start: 2000
  2. LORAX//LORAZEPAM [Suspect]
     Active Substance: LORAZEPAM
     Indication: PANIC DISORDER
     Dosage: 4 MG, DAILY (4 TABLETS DAILY OF 1 MG)
     Dates: start: 2018, end: 20190115
  3. LORAX//LORAZEPAM [Suspect]
     Active Substance: LORAZEPAM
     Indication: DEPRESSION
     Dosage: 4 MG, DAILY (2 TABLETS OF 2 MG DAILY)
     Dates: start: 2017, end: 2017
  4. DORMONID [MIDAZOLAM HYDROCHLORIDE] [Concomitant]
     Dosage: UNK
     Dates: start: 2017, end: 2017
  5. LORAX//LORAZEPAM [Suspect]
     Active Substance: LORAZEPAM
     Indication: ANXIETY

REACTIONS (6)
  - Headache [Recovered/Resolved]
  - Insomnia [Recovered/Resolved]
  - Mental disorder [Recovered/Resolved]
  - Head discomfort [Recovered/Resolved]
  - Drug ineffective [Unknown]
  - Gastrointestinal disorder [Recovered/Resolved]

NARRATIVE: CASE EVENT DATE: 2016
